FAERS Safety Report 25784545 (Version 2)
Quarter: 2025Q3

REPORT INFORMATION
  Report Type: Report from Study
  Country: US (occurrence: US)
  Receive Date: 20250910
  Receipt Date: 20250912
  Transmission Date: 20251020
  Serious: Yes (Other)
  Sender: NOVARTIS
  Company Number: US-002147023-NVSC2025US140065

PATIENT
  Sex: Female

DRUGS (2)
  1. KISQALI [Suspect]
     Active Substance: RIBOCICLIB SUCCINATE
     Indication: Breast cancer metastatic
     Dosage: 600 MG, QD
     Route: 048
  2. KISQALI [Suspect]
     Active Substance: RIBOCICLIB SUCCINATE
     Indication: Neoplasm
     Dosage: 600 MG, TID, PILLS DAILY
     Route: 048

REACTIONS (6)
  - Peripheral swelling [Unknown]
  - Joint swelling [Unknown]
  - Oral mucosal blistering [Unknown]
  - Lip blister [Unknown]
  - Nausea [Unknown]
  - Oral pain [Unknown]
